FAERS Safety Report 18040753 (Version 4)
Quarter: 2021Q2

REPORT INFORMATION
  Report Type: Spontaneous
  Country: US (occurrence: US)
  Receive Date: 20200717
  Receipt Date: 20210622
  Transmission Date: 20210717
  Serious: Yes (Other)
  Sender: FDA-Public Use
  Company Number: US-GILEAD-2020-0481716

PATIENT
  Age: 73 Year
  Sex: Male
  Weight: 68.93 kg

DRUGS (45)
  1. CARVEDILOL. [Concomitant]
     Active Substance: CARVEDILOL
  2. METOPROLOL. [Concomitant]
     Active Substance: METOPROLOL
  3. MYCOPHENOLATE MOFETIL. [Concomitant]
     Active Substance: MYCOPHENOLATE MOFETIL
  4. VALGANCICLOVIR. [Concomitant]
     Active Substance: VALGANCICLOVIR
  5. TACROLIMUS. [Concomitant]
     Active Substance: TACROLIMUS
  6. FISH OIL [Concomitant]
     Active Substance: FISH OIL
  7. MYCOPHENOLIC ACID. [Concomitant]
     Active Substance: MYCOPHENOLIC ACID
  8. ASPIRIN (E.C.) [Concomitant]
     Active Substance: ASPIRIN
  9. ZIAGEN [Concomitant]
     Active Substance: ABACAVIR SULFATE
  10. AZITHROMYCIN ANHYDROUS. [Concomitant]
     Active Substance: AZITHROMYCIN ANHYDROUS
  11. GLIPIZIDE. [Concomitant]
     Active Substance: GLIPIZIDE
  12. LANTUS [Concomitant]
     Active Substance: INSULIN GLARGINE
  13. MYCOPHENOLATE SODIUM [Concomitant]
     Active Substance: MYCOPHENOLATE SODIUM
  14. CINACALCET. [Concomitant]
     Active Substance: CINACALCET
  15. GABAPENTIN. [Concomitant]
     Active Substance: GABAPENTIN
  16. SENNA [SENNA ALEXANDRINA] [Concomitant]
     Active Substance: SENNA LEAF
  17. PHOSLO [Concomitant]
     Active Substance: CALCIUM ACETATE
  18. BACTRIM [Concomitant]
     Active Substance: SULFAMETHOXAZOLE\TRIMETHOPRIM
  19. OMEPRAZOLE. [Concomitant]
     Active Substance: OMEPRAZOLE
  20. TIVICAY [Concomitant]
     Active Substance: DOLUTEGRAVIR SODIUM
  21. CIPROFLOXACIN. [Concomitant]
     Active Substance: CIPROFLOXACIN
  22. ATRIPLA [Suspect]
     Active Substance: EFAVIRENZ\EMTRICITABINE\TENOFOVIR DISOPROXIL FUMARATE
     Dosage: UNK
     Route: 048
     Dates: start: 200607, end: 20090620
  23. RENVELA [Concomitant]
     Active Substance: SEVELAMER CARBONATE
  24. ACETAMINOPHEN. [Concomitant]
     Active Substance: ACETAMINOPHEN
  25. PREDNISOLONE ACETATE. [Concomitant]
     Active Substance: PREDNISOLONE ACETATE
  26. TRIUMEQ [Concomitant]
     Active Substance: ABACAVIR SULFATE\DOLUTEGRAVIR SODIUM\LAMIVUDINE
  27. BENADRYL [Concomitant]
     Active Substance: DIPHENHYDRAMINE HYDROCHLORIDE
  28. CLOPIDOGREL [Concomitant]
     Active Substance: CLOPIDOGREL BISULFATE
  29. COREG [Concomitant]
     Active Substance: CARVEDILOL
  30. DULOXETINE. [Concomitant]
     Active Substance: DULOXETINE
  31. FAMOTIDINE. [Concomitant]
     Active Substance: FAMOTIDINE
  32. SENSIPAR [Concomitant]
     Active Substance: CINACALCET HYDROCHLORIDE
  33. COLACE [Concomitant]
     Active Substance: DOCUSATE SODIUM
  34. ATRIPLA [Suspect]
     Active Substance: EFAVIRENZ\EMTRICITABINE\TENOFOVIR DISOPROXIL FUMARATE
     Indication: HIV INFECTION
     Dosage: UNK
     Route: 048
     Dates: start: 200606, end: 2009
  35. ATORVASTATIN [Concomitant]
     Active Substance: ATORVASTATIN
  36. PREDNISONE. [Concomitant]
     Active Substance: PREDNISONE
  37. EPIVIR [Concomitant]
     Active Substance: LAMIVUDINE
  38. AMLODIPINE [Concomitant]
     Active Substance: AMLODIPINE BESYLATE
  39. SEVELAMER CARBONATE. [Concomitant]
     Active Substance: SEVELAMER CARBONATE
  40. VIAGRA [Concomitant]
     Active Substance: SILDENAFIL CITRATE
  41. MYCOPHENOLATE [Concomitant]
     Active Substance: MYCOPHENOLIC ACID
  42. SUSTIVA [Concomitant]
     Active Substance: EFAVIRENZ
  43. DIPHENHYDRAMINE. [Concomitant]
     Active Substance: DIPHENHYDRAMINE
  44. NIFEDIPINE. [Concomitant]
     Active Substance: NIFEDIPINE
  45. SODIUM POLYSTYRENE SULFONATE. [Concomitant]
     Active Substance: SODIUM POLYSTYRENE SULFONATE

REACTIONS (10)
  - Pain [Unknown]
  - Tooth loss [Unknown]
  - Osteoporosis [Unknown]
  - Acute kidney injury [Unknown]
  - Renal failure [Unknown]
  - Emotional distress [Unknown]
  - Bone density decreased [Unknown]
  - End stage renal disease [Not Recovered/Not Resolved]
  - Chronic kidney disease [Not Recovered/Not Resolved]
  - Renal tubular necrosis [Unknown]

NARRATIVE: CASE EVENT DATE: 200912
